FAERS Safety Report 23545374 (Version 2)
Quarter: 2024Q1

REPORT INFORMATION
  Report Type: Spontaneous
  Country: CA (occurrence: CA)
  Receive Date: 20240220
  Receipt Date: 20240221
  Transmission Date: 20240410
  Serious: Yes (Other)
  Sender: FDA-Public Use
  Company Number: US-The Proactiv LLC-2153447

PATIENT
  Age: 45 Year
  Sex: Female

DRUGS (6)
  1. PROACTIV SOLUTION RENEWING CLEANSER [Suspect]
     Active Substance: BENZOYL PEROXIDE
     Route: 061
     Dates: start: 2024, end: 2024
  2. PROACTIV REVITALIZING TONER COMBINATION THERAPY ACNE TREATMENT [Suspect]
     Active Substance: SALICYLIC ACID
     Route: 061
     Dates: start: 2024, end: 2024
  3. DEVICE [Suspect]
     Active Substance: DEVICE
     Route: 061
     Dates: start: 2024, end: 2024
  4. PROACTIV ACNE BODY WASH [Suspect]
     Active Substance: SALICYLIC ACID
     Route: 061
     Dates: start: 2024, end: 2024
  5. PROACTIV SOLUTION BLACKHEAD DISSOLVING [Suspect]
     Active Substance: SALICYLIC ACID
     Route: 061
     Dates: start: 2024, end: 2024
  6. PROACTIV REPAIRING TREATMENT [Suspect]
     Active Substance: BENZOYL PEROXIDE
     Route: 061
     Dates: start: 2024, end: 2024

REACTIONS (5)
  - Rash [Recovered/Resolved]
  - Anaphylactic shock [Recovered/Resolved]
  - Neoplasm malignant [Unknown]
  - Acne [Recovered/Resolved]
  - Hypersensitivity [Recovered/Resolved]

NARRATIVE: CASE EVENT DATE: 20240101
